FAERS Safety Report 12607967 (Version 1)
Quarter: 2016Q3

REPORT INFORMATION
  Report Type: Spontaneous
  Country: IL (occurrence: CA)
  Receive Date: 20160729
  Receipt Date: 20160729
  Transmission Date: 20161109
  Serious: Yes (Life-Threatening, Hospitalization)
  Sender: FDA-Public Use
  Company Number: IL-SEBELA IRELAND LIMITED-2016SEB00294

PATIENT
  Age: 15 Year

DRUGS (1)
  1. ATROPINE. [Suspect]
     Active Substance: ATROPINE
     Route: 048

REACTIONS (3)
  - Toxicity to various agents [Unknown]
  - Suicide attempt [Recovered/Resolved]
  - Hallucination [Unknown]
